FAERS Safety Report 7120804-4 (Version None)
Quarter: 2010Q4

REPORT INFORMATION
  Report Type: 
  Country: None (occurrence: None)
  Receive Date: 20101124
  Receipt Date: 20101117
  Transmission Date: 20110411
  Serious: Yes (Other)
  Sender: FDA-Public Use
  Company Number: JP-PFIZER INC-2010151181

PATIENT
  Age: 25 Year
  Sex: Male

DRUGS (1)
  1. SOMATROPIN [Suspect]
     Indication: DWARFISM
     Route: 058

REACTIONS (4)
  - ANAEMIA [None]
  - DYSPNOEA [None]
  - GASTRIC CANCER [None]
  - TACHYCARDIA [None]
